FAERS Safety Report 9032562 (Version 1)
Quarter: 2013Q1

REPORT INFORMATION
  Report Type: Spontaneous
  Country: US (occurrence: None)
  Receive Date: 20130109
  Receipt Date: 20130109
  Transmission Date: 20140127
  Serious: Yes (Hospitalization)
  Sender: FDA-Public Use
  Company Number: DSA_61658_2012

PATIENT
  Age: 57 Year
  Sex: Male

DRUGS (1)
  1. XENAZINE 12.5 MG (NOT SPECIFIED) [Suspect]
     Indication: HUNTINGTON^S DISEASE
     Route: 048
     Dates: start: 20121227, end: 20121229

REACTIONS (4)
  - Dizziness [None]
  - Chromatopsia [None]
  - Headache [None]
  - Abdominal discomfort [None]
